FAERS Safety Report 4651779-5 (Version None)
Quarter: 2005Q2

REPORT INFORMATION
  Report Type: 
  Country: None (occurrence: None)
  Receive Date: 20050504
  Receipt Date: 20050422
  Transmission Date: 20051028
  Serious: Yes (Hospitalization, Other)
  Sender: FDA-Public Use
  Company Number: JP-JNJFOC-20050405853

PATIENT
  Sex: Male
  Weight: 59 kg

DRUGS (6)
  1. REMICADE [Suspect]
     Indication: RHEUMATOID ARTHRITIS
  2. METHOTREXATE [Concomitant]
     Indication: RHEUMATOID ARTHRITIS
  3. PREDNISOLONE [Concomitant]
     Indication: RHEUMATOID ARTHRITIS
     Route: 049
  4. BREDININE [Concomitant]
     Indication: RHEUMATOID ARTHRITIS
     Route: 049
  5. MOBIC [Concomitant]
     Indication: RHEUMATOID ARTHRITIS
     Route: 049
  6. TAKEPRON OD [Concomitant]
     Route: 049

REACTIONS (1)
  - GASTRIC CANCER [None]
